APPROVED DRUG PRODUCT: TRAVASOL 3.5% SULFITE FREE W/ ELECTROLYTES IN PLASTIC CONTAINER
Active Ingredient: AMINO ACIDS; MAGNESIUM CHLORIDE; POTASSIUM PHOSPHATE, DIBASIC; SODIUM ACETATE; SODIUM CHLORIDE
Strength: 3.5%;51MG/100ML;131MG/100ML;218MG/100ML;35MG/100ML
Dosage Form/Route: INJECTABLE;INJECTION
Application: N020177 | Product #001
Applicant: BAXTER HEALTHCARE CORP
Approved: Oct 23, 1995 | RLD: No | RS: No | Type: DISCN